FAERS Safety Report 6966348-1 (Version None)
Quarter: 2010Q3

REPORT INFORMATION
  Report Type: 
  Country: None (occurrence: None)
  Receive Date: 20100903
  Receipt Date: 20100826
  Transmission Date: 20110219
  Serious: Yes (Hospitalization)
  Sender: FDA-Public Use
  Company Number: JP-ROCHE-710289

PATIENT
  Sex: Male
  Weight: 57 kg

DRUGS (7)
  1. AVASTIN [Suspect]
     Indication: RECTAL CANCER METASTATIC
     Route: 041
     Dates: start: 20091021, end: 20100317
  2. ELPLAT [Suspect]
     Indication: RECTAL CANCER METASTATIC
     Route: 041
     Dates: start: 20091021, end: 20100317
  3. LEUCOVORIN CALCIUM [Suspect]
     Indication: RECTAL CANCER METASTATIC
     Route: 041
     Dates: start: 20091021, end: 20100317
  4. FLUOROURACIL [Suspect]
     Indication: RECTAL CANCER METASTATIC
     Route: 041
     Dates: start: 20091021, end: 20100301
  5. GRANISETRON HYDROCHLORIDE [Concomitant]
     Dosage: ROUTE: INTRAVENOUS (NOT OTHERWISE SPECIFIED)
     Route: 042
     Dates: start: 20090603, end: 20100317
  6. DEXART [Concomitant]
     Dosage: ROUTE: INTRAVENOUS (NOT OTHERWISE SPECIFIED)
     Route: 042
     Dates: start: 20090603, end: 20100317
  7. PYDOXAL [Concomitant]
     Route: 065
     Dates: start: 20091111

REACTIONS (5)
  - CARDIAC FAILURE [None]
  - HYPOAESTHESIA [None]
  - LUNG DISORDER [None]
  - PULMONARY CONGESTION [None]
  - PYREXIA [None]
